FAERS Safety Report 21348998 (Version 1)
Quarter: 2022Q3

REPORT INFORMATION
  Report Type: Spontaneous
  Country: VN (occurrence: VN)
  Receive Date: 20220919
  Receipt Date: 20220919
  Transmission Date: 20221027
  Serious: Yes (Other)
  Sender: FDA-Public Use
  Company Number: VN-SUN PHARMACEUTICAL INDUSTRIES LTD-2022R1-354803

PATIENT
  Age: 5 Year
  Sex: Female

DRUGS (4)
  1. PREDNISOLONE [Suspect]
     Active Substance: PREDNISOLONE
     Indication: Encephalitis autoimmune
     Dosage: 30 MILLIGRAM, DAILY
     Route: 065
     Dates: start: 20180822, end: 20180911
  2. RISPERIDONE [Suspect]
     Active Substance: RISPERIDONE
     Indication: Encephalitis autoimmune
     Dosage: 1 MILLIGRAM, DAILY
     Route: 065
     Dates: start: 20180822, end: 20180911
  3. VALPROATE SODIUM [Suspect]
     Active Substance: VALPROATE SODIUM
     Indication: Encephalitis autoimmune
     Dosage: 300 MILLIGRAM, DAILY
     Route: 065
     Dates: start: 20180822, end: 20180911
  4. SOLU-MEDROL [Suspect]
     Active Substance: METHYLPREDNISOLONE SODIUM SUCCINATE
     Indication: Encephalitis autoimmune
     Dosage: 20 MILLIGRAM/KILOGRAM, DAILY
     Route: 065
     Dates: start: 20180822, end: 20180911

REACTIONS (4)
  - Myoclonus [Recovering/Resolving]
  - Hypertonia [Recovering/Resolving]
  - Constipation [Recovering/Resolving]
  - Urinary incontinence [Recovering/Resolving]

NARRATIVE: CASE EVENT DATE: 20180827
